FAERS Safety Report 15823098 (Version 1)
Quarter: 2019Q1

REPORT INFORMATION
  Report Type: Report from Study
  Country: US (occurrence: US)
  Receive Date: 20190114
  Receipt Date: 20190114
  Transmission Date: 20190417
  Serious: Yes (Hospitalization)
  Sender: FDA-Public Use
  Company Number: US-TEVA-2018-US-974467

PATIENT
  Age: 81 Year
  Sex: Female
  Weight: 104 kg

DRUGS (19)
  1. TEVA CLOZAPINE [Suspect]
     Active Substance: CLOZAPINE
     Dosage: 150 MILLIGRAM DAILY;
     Route: 048
  2. SENNA-S [Concomitant]
     Active Substance: DOCUSATE SODIUM\SENNOSIDES
     Route: 048
  3. ROMYCIN [Concomitant]
     Dosage: APPLY 1 APPLICATION TO BOTH EYES NIGHTLY
  4. FENOFIBRATE. [Concomitant]
     Active Substance: FENOFIBRATE
     Route: 048
  5. ACETAMINOPHEN. [Concomitant]
     Active Substance: ACETAMINOPHEN
     Indication: ARTHRITIS
     Dosage: AS NEEDED
     Route: 048
  6. BISACODYL. [Concomitant]
     Active Substance: BISACODYL
     Indication: CONSTIPATION
     Dosage: INSERT 10 MG INTO THE RECTUM DAILY AS NEEDED
  7. TEVA CLOZAPINE [Suspect]
     Active Substance: CLOZAPINE
     Dosage: REFILLS 11
     Route: 048
     Dates: start: 20171103, end: 20181102
  8. MENTHOL. [Concomitant]
     Active Substance: MENTHOL
     Dosage: LOZENGE BY MUCOUS MEMBRANE ROUTE AS NEEDED
  9. METHYL SALICYLATE [Concomitant]
     Active Substance: METHYL SALICYLATE
     Indication: PAIN
     Dosage: 6.25 TO 12.5%, APPLY TO LEFT CLAVICLE AREA OR CHEST FOUR TIMES A DAY
  10. ROBITUSSIN (GUAIFENESIN) [Concomitant]
     Active Substance: GUAIFENESIN
     Dosage: 100 MG/5 ML
     Route: 048
  11. MAGNESIUM HYDROXIDE. [Concomitant]
     Active Substance: MAGNESIUM HYDROXIDE
     Dosage: 400 MG/5 ML SUSPENSION MOUTH EVERY 3RD (THIRD) DAY AS NEEDED
  12. CARBAMIDE PEROXIDE [Concomitant]
     Active Substance: CARBAMIDE PEROXIDE
     Dosage: SOULTION
  13. CELEXA [Concomitant]
     Active Substance: CITALOPRAM HYDROBROMIDE
     Route: 048
  14. MYCOSTATIN [Concomitant]
     Active Substance: NYSTATIN
     Dosage: APPLY 1 APPLICATION, NIGHTLY.
     Route: 061
  15. TEVA CLOZAPINE [Suspect]
     Active Substance: CLOZAPINE
     Route: 048
  16. ALBUTEROL SULFATE. [Concomitant]
     Active Substance: ALBUTEROL SULFATE
     Indication: DYSPNOEA
     Dosage: TAKE 2 PUFF BY MOUTH 4 TIMES A DAY
  17. BISMUTH SUBSALICYLATE. [Concomitant]
     Active Substance: BISMUTH SUBSALICYLATE
     Indication: DIARRHOEA
     Dosage: 262 MG/15 ML
  18. NITROGLYCERIN. [Concomitant]
     Active Substance: NITROGLYCERIN
     Indication: CHEST PAIN
  19. ONDANSETRON [Concomitant]
     Active Substance: ONDANSETRON

REACTIONS (21)
  - Delirium [Unknown]
  - Sedation [Recovered/Resolved]
  - Depression [Unknown]
  - Fall [Unknown]
  - Hypertension [Recovered/Resolved]
  - Urinary tract infection [Unknown]
  - Enteritis [Recovering/Resolving]
  - Norovirus test positive [Unknown]
  - Diarrhoea [Recovered/Resolved]
  - Hypoglycaemia [Recovered/Resolved]
  - Metabolic encephalopathy [Recovered/Resolved]
  - Bacteriuria [Unknown]
  - Decubitus ulcer [Unknown]
  - Mental status changes [Unknown]
  - Disorientation [Unknown]
  - Unresponsive to stimuli [Unknown]
  - Blood creatinine increased [Unknown]
  - Anxiety [Unknown]
  - Leukocytosis [Unknown]
  - Blood urea increased [Unknown]
  - Somnolence [Unknown]
